FAERS Safety Report 24783390 (Version 2)
Quarter: 2025Q1

REPORT INFORMATION
  Report Type: Report from Study
  Country: CA (occurrence: CA)
  Receive Date: 20241227
  Receipt Date: 20250107
  Transmission Date: 20250408
  Serious: Yes (Hospitalization, Other)
  Sender: ROCHE
  Company Number: CA-002147023-NVSC2024CA234462

PATIENT
  Age: 42 Year
  Sex: Male

DRUGS (6)
  1. XOLAIR [Suspect]
     Active Substance: OMALIZUMAB
     Indication: Chronic spontaneous urticaria
     Dosage: 300 MG, 4 WEEKS
     Route: 050
     Dates: start: 20240826
  2. XOLAIR [Suspect]
     Active Substance: OMALIZUMAB
     Route: 050
     Dates: start: 20241121
  3. BENADRYL [Suspect]
     Active Substance: DIPHENHYDRAMINE HYDROCHLORIDE
     Indication: Swelling face
     Dosage: 25 MG, Q3H (TOTALLY 200 MG DAILY)
     Route: 065
  4. BENADRYL [Suspect]
     Active Substance: DIPHENHYDRAMINE HYDROCHLORIDE
     Indication: Eye swelling
     Dosage: 1 DOSAGE FORM, Q2H (1 BENADRYL EVERY TWO HOURS)
     Route: 065
  5. BENADRYL [Suspect]
     Active Substance: DIPHENHYDRAMINE HYDROCHLORIDE
     Indication: Swelling
     Route: 065
  6. BENADRYL [Suspect]
     Active Substance: DIPHENHYDRAMINE HYDROCHLORIDE
     Indication: Pyrexia

REACTIONS (24)
  - Lymphadenopathy [Unknown]
  - Paralysis [Unknown]
  - Angioedema [Unknown]
  - Facial paralysis [Not Recovered/Not Resolved]
  - Mast cell activation syndrome [Unknown]
  - Swelling [Unknown]
  - Arthralgia [Not Recovered/Not Resolved]
  - Myalgia [Not Recovered/Not Resolved]
  - Arthritis [Unknown]
  - Urticaria [Not Recovered/Not Resolved]
  - Gait disturbance [Unknown]
  - Swelling face [Not Recovered/Not Resolved]
  - Back pain [Not Recovered/Not Resolved]
  - Pruritus [Not Recovered/Not Resolved]
  - Eye swelling [Not Recovered/Not Resolved]
  - Perfume sensitivity [Not Recovered/Not Resolved]
  - Joint swelling [Unknown]
  - Mobility decreased [Unknown]
  - Osteitis [Unknown]
  - Pyrexia [Unknown]
  - Drug hypersensitivity [Unknown]
  - Toxicity to various agents [Recovered/Resolved]
  - Anaphylactic reaction [Not Recovered/Not Resolved]
  - Psychotic disorder [Unknown]
